FAERS Safety Report 25701877 (Version 1)
Quarter: 2025Q3

REPORT INFORMATION
  Report Type: Spontaneous
  Country: US (occurrence: US)
  Receive Date: 20250819
  Receipt Date: 20250819
  Transmission Date: 20251021
  Serious: No
  Sender: GALPHARM INTERNATIONAL
  Company Number: US-PERRIGO-25US001776

PATIENT
  Age: 53 Year
  Sex: Female
  Weight: 67.12 kg

DRUGS (2)
  1. MINOXIDIL [Suspect]
     Active Substance: MINOXIDIL
     Indication: Alopecia
     Route: 061
     Dates: start: 20241220, end: 20241220
  2. MINOXIDIL [Suspect]
     Active Substance: MINOXIDIL
     Route: 061
     Dates: start: 20241221, end: 20241221

REACTIONS (4)
  - Ophthalmic migraine [Recovered/Resolved]
  - Underdose [Unknown]
  - Product administered at inappropriate site [Unknown]
  - Intentional product use issue [Unknown]

NARRATIVE: CASE EVENT DATE: 20241220
